FAERS Safety Report 23788501 (Version 1)
Quarter: 2024Q2

REPORT INFORMATION
  Report Type: Spontaneous
  Country: NL (occurrence: NL)
  Receive Date: 20240426
  Receipt Date: 20240426
  Transmission Date: 20240716
  Serious: Yes (Hospitalization)
  Sender: FDA-Public Use
  Company Number: NL-SANDOZ-SDZ2024NL042510

PATIENT

DRUGS (1)
  1. AMOXICILLIN\CLAVULANATE POTASSIUM [Suspect]
     Active Substance: AMOXICILLIN\CLAVULANATE POTASSIUM
     Indication: Renal impairment
     Dosage: UNK (250/62.5)
     Route: 065

REACTIONS (4)
  - Urine flow decreased [Unknown]
  - Weight decreased [Unknown]
  - Diarrhoea [Unknown]
  - Accidental overdose [Unknown]
